FAERS Safety Report 25597404 (Version 4)
Quarter: 2025Q3

REPORT INFORMATION
  Report Type: Spontaneous
  Country: US (occurrence: US)
  Receive Date: 20250723
  Receipt Date: 20250905
  Transmission Date: 20251021
  Serious: No
  Sender: PFIZER
  Company Number: US-PFIZER INC-202500145926

PATIENT
  Age: 22 Year
  Sex: Male
  Weight: 83.91 kg

DRUGS (1)
  1. BICILLIN L-A [Suspect]
     Active Substance: PENICILLIN G BENZATHINE
     Indication: Beta haemolytic streptococcal infection
     Route: 030
     Dates: start: 20250113, end: 20250113

REACTIONS (2)
  - Recalled product administered [Unknown]
  - Off label use [Unknown]
